FAERS Safety Report 7640434-5 (Version None)
Quarter: 2011Q3

REPORT INFORMATION
  Report Type: 
  Country: None (occurrence: None)
  Receive Date: 20110728
  Receipt Date: 20110719
  Transmission Date: 20111222
  Serious: Yes (Hospitalization)
  Sender: FDA-Public Use
  Company Number: US-BIOGENIDEC-2011BI026848

PATIENT
  Age: 46 Year
  Sex: Female

DRUGS (2)
  1. AVONEX [Suspect]
     Indication: MULTIPLE SCLEROSIS
     Route: 030
     Dates: start: 19960601
  2. AVONEX [Suspect]
     Route: 030
     Dates: start: 19991101

REACTIONS (4)
  - MOBILITY DECREASED [None]
  - COMA [None]
  - FALL [None]
  - WRIST FRACTURE [None]
